FAERS Safety Report 17016403 (Version 1)
Quarter: 2019Q4

REPORT INFORMATION
  Report Type: Report from Study
  Country: BR (occurrence: BR)
  Receive Date: 20191111
  Receipt Date: 20191111
  Transmission Date: 20200122
  Serious: Yes (Other)
  Sender: FDA-Public Use
  Company Number: NVSC2019BR025284

PATIENT
  Age: 80 Year
  Sex: Female

DRUGS (1)
  1. DIOVAN [Suspect]
     Active Substance: VALSARTAN
     Indication: PRODUCT USED FOR UNKNOWN INDICATION
     Dosage: (320 UNITS NOT PROVIDED, STARTED 8 YEARS AGO)
     Route: 065

REACTIONS (12)
  - Disturbance in attention [Unknown]
  - Malaise [Unknown]
  - Hypotension [Unknown]
  - Food poisoning [Unknown]
  - Diabetes mellitus [Unknown]
  - Enteritis infectious [Recovering/Resolving]
  - Diarrhoea [Recovering/Resolving]
  - Vitamin B complex deficiency [Unknown]
  - Syncope [Unknown]
  - Ill-defined disorder [Unknown]
  - Amnesia [Not Recovered/Not Resolved]
  - Cold sweat [Unknown]

NARRATIVE: CASE EVENT DATE: 20191030
